FAERS Safety Report 19883962 (Version 1)
Quarter: 2021Q3

REPORT INFORMATION
  Report Type: Spontaneous
  Country: US (occurrence: US)
  Receive Date: 20210924
  Receipt Date: 20210924
  Transmission Date: 20211014
  Serious: Yes (Death)
  Sender: FDA-Public Use
  Company Number: None

PATIENT
  Age: 63 Year
  Sex: Female
  Weight: 56.25 kg

DRUGS (4)
  1. TACROLIMUS 1MG ORAL CAPSULES [Concomitant]
     Dates: start: 20200107, end: 20210830
  2. TACROLIMUS. [Suspect]
     Active Substance: TACROLIMUS
     Indication: PROPHYLAXIS AGAINST TRANSPLANT REJECTION
     Route: 048
     Dates: start: 20200107, end: 20210830
  3. MYCOPHENOLATE 250MG ORAL CAPSULES [Concomitant]
     Dates: start: 20200107, end: 20210830
  4. MYCOPHENOLATE [Suspect]
     Active Substance: MYCOPHENOLIC ACID
     Indication: KIDNEY TRANSPLANT REJECTION
     Route: 046
     Dates: start: 20200107, end: 20210830

REACTIONS (1)
  - Death [None]

NARRATIVE: CASE EVENT DATE: 20210830
